FAERS Safety Report 11996273 (Version 4)
Quarter: 2017Q3

REPORT INFORMATION
  Report Type: Spontaneous
  Country: US (occurrence: US)
  Receive Date: 20160203
  Receipt Date: 20170801
  Transmission Date: 20171127
  Serious: Yes (Hospitalization)
  Sender: FDA-Public Use
  Company Number: US-ACTELION-A-NJ2016-130580

PATIENT
  Age: 72 Year
  Sex: Male

DRUGS (15)
  1. COUMADIN [Concomitant]
     Active Substance: WARFARIN SODIUM
  2. DIOVAN [Concomitant]
     Active Substance: VALSARTAN
  3. BUMETANIDE. [Concomitant]
     Active Substance: BUMETANIDE
  4. ALVESCO [Concomitant]
     Active Substance: CICLESONIDE
  5. XOPENEX HFA [Concomitant]
     Active Substance: LEVALBUTEROL TARTRATE
  6. SPIRONOLACTONE. [Concomitant]
     Active Substance: SPIRONOLACTONE
  7. DILTIAZEM. [Concomitant]
     Active Substance: DILTIAZEM
  8. OMEPRAZOLE. [Concomitant]
     Active Substance: OMEPRAZOLE
  9. OMNARIS [Concomitant]
     Active Substance: CICLESONIDE
  10. METOPROLOL. [Concomitant]
     Active Substance: METOPROLOL
  11. VELETRI [Suspect]
     Active Substance: EPOPROSTENOL
     Indication: PULMONARY ARTERIAL HYPERTENSION
     Dosage: UNK
     Route: 042
     Dates: end: 20170707
  12. TYVASO [Suspect]
     Active Substance: TREPROSTINIL
     Indication: PRODUCT USED FOR UNKNOWN INDICATION
     Dosage: 72 MCG, 12 BREATHS 4 X QD
     Route: 045
  13. ALLOPURINOL. [Concomitant]
     Active Substance: ALLOPURINOL
  14. OPSUMIT [Suspect]
     Active Substance: MACITENTAN
     Indication: PULMONARY ARTERIAL HYPERTENSION
     Dosage: 10 MG, QD
     Route: 048
     Dates: start: 201401
  15. ADCIRCA [Concomitant]
     Active Substance: TADALAFIL
     Dosage: 40 MG, QD
     Route: 048

REACTIONS (8)
  - Dysgeusia [Recovered/Resolved]
  - Quality of life decreased [Unknown]
  - Laceration [Recovering/Resolving]
  - Loss of consciousness [Recovered/Resolved]
  - Pulmonary arterial pressure abnormal [Unknown]
  - Transfusion [Unknown]
  - Right ventricular failure [Unknown]
  - Haemorrhage [Unknown]

NARRATIVE: CASE EVENT DATE: 20160114
